FAERS Safety Report 4421384-4 (Version None)
Quarter: 2004Q3

REPORT INFORMATION
  Report Type: 
  Country: None (occurrence: None)
  Receive Date: 20040804
  Receipt Date: 20040723
  Transmission Date: 20050211
  Serious: No
  Sender: FDA-Public Use
  Company Number: 2004UW15689

PATIENT
  Age: 16 Year

DRUGS (1)
  1. LOSEC MUPS [Suspect]

REACTIONS (1)
  - GASTROINTESTINAL HAEMORRHAGE [None]
